FAERS Safety Report 10016882 (Version 1)
Quarter: 2014Q1

REPORT INFORMATION
  Report Type: Spontaneous
  Country: US (occurrence: US)
  Receive Date: 20140318
  Receipt Date: 20140318
  Transmission Date: 20141002
  Serious: No
  Sender: FDA-Public Use
  Company Number: US-009507513-1403USA007420

PATIENT
  Sex: Male

DRUGS (3)
  1. JANUVIA [Suspect]
     Indication: DIABETES MELLITUS
     Dosage: 100 MG TABLETS
     Route: 048
  2. JANUVIA [Suspect]
     Dosage: A HALF OF A 100MG TABLET ONCE DAILY
     Route: 048
  3. TARKA [Concomitant]

REACTIONS (3)
  - Blood glucose abnormal [Unknown]
  - Blood glucose decreased [Unknown]
  - Wrong technique in drug usage process [Unknown]
